FAERS Safety Report 6903366-3 (Version None)
Quarter: 2010Q3

REPORT INFORMATION
  Report Type: 
  Country: None (occurrence: None)
  Receive Date: 20100803
  Receipt Date: 20081025
  Transmission Date: 20110219
  Serious: No
  Sender: FDA-Public Use
  Company Number: US-PFIZER INC-2008081120

PATIENT
  Sex: Female

DRUGS (7)
  1. LYRICA [Suspect]
  2. GLYBURIDE [Concomitant]
  3. HYDROXYZINE [Concomitant]
  4. AMBIEN [Concomitant]
  5. METFORMIN HCL [Concomitant]
  6. ANTIHYPERTENSIVES [Concomitant]
  7. CHOLESTEROL- AND TRIGLYCERIDE REDUCERS [Concomitant]

REACTIONS (4)
  - DIZZINESS [None]
  - DRUG INTOLERANCE [None]
  - FATIGUE [None]
  - WRONG TECHNIQUE IN DRUG USAGE PROCESS [None]
